FAERS Safety Report 9948270 (Version 2)
Quarter: 2014Q1

REPORT INFORMATION
  Report Type: Report from Study
  Country: US (occurrence: US)
  Receive Date: 20140303
  Receipt Date: 20140303
  Transmission Date: 20141002
  Serious: No
  Sender: FDA-Public Use
  Company Number: US-ABBVIE-13P-163-1045853-00

PATIENT
  Age: 39 Year
  Sex: Male

DRUGS (6)
  1. HUMIRA [Suspect]
     Indication: CROHN^S DISEASE
     Dates: start: 20121005
  2. ASACOL [Concomitant]
     Indication: CROHN^S DISEASE
  3. CITALOPRAM [Concomitant]
     Indication: DEPRESSION
  4. HYDROCHLOROTHIAZIDE [Concomitant]
     Indication: HYPERTENSION
  5. TRAMADOL [Concomitant]
     Indication: BACK PAIN
     Dosage: 2 DAILY
  6. TRAMADOL [Concomitant]
     Indication: ARTHRALGIA

REACTIONS (4)
  - Injection site haemorrhage [Recovering/Resolving]
  - Back pain [Recovering/Resolving]
  - Pain [Not Recovered/Not Resolved]
  - Ankylosing spondylitis [Not Recovered/Not Resolved]
